FAERS Safety Report 13973027 (Version 2)
Quarter: 2018Q3

REPORT INFORMATION
  Report Type: Spontaneous
  Country: ES (occurrence: ES)
  Receive Date: 20170914
  Receipt Date: 20180723
  Transmission Date: 20181010
  Serious: Yes (Other)
  Sender: FDA-Public Use
  Company Number: ES-PFIZER INC-2014256076

PATIENT
  Age: 31 Year
  Sex: Female

DRUGS (10)
  1. VANCOMYCIN HCL [Suspect]
     Active Substance: VANCOMYCIN HYDROCHLORIDE
     Indication: ABSCESS
  2. OMEPRAZOLE. [Concomitant]
     Active Substance: OMEPRAZOLE
     Indication: SUPPORTIVE CARE
     Dosage: UNK
  3. MEROPENEM. [Suspect]
     Active Substance: MEROPENEM
     Indication: ANTIBIOTIC THERAPY
     Dosage: UNK
     Route: 042
  4. VANCOMYCIN HCL [Suspect]
     Active Substance: VANCOMYCIN HYDROCHLORIDE
     Indication: POSTOPERATIVE WOUND INFECTION
     Dosage: UNK
  5. VANCOMYCIN HCL [Suspect]
     Active Substance: VANCOMYCIN HYDROCHLORIDE
     Indication: ANTIBIOTIC THERAPY
  6. VANCOMYCIN HCL [Suspect]
     Active Substance: VANCOMYCIN HYDROCHLORIDE
     Indication: CEREBROSPINAL FISTULA
  7. PARACETAMOL [Concomitant]
     Active Substance: ACETAMINOPHEN
     Indication: ANALGESIC INTERVENTION SUPPORTIVE THERAPY
     Dosage: UNK
  8. DIPIRONE [Concomitant]
     Active Substance: METAMIZOLE SODIUM
     Indication: ANALGESIC INTERVENTION SUPPORTIVE THERAPY
     Dosage: UNK
  9. CIPROFLOXACIN. [Concomitant]
     Active Substance: CIPROFLOXACIN
     Indication: WOUND INFECTION
     Dosage: UNK
  10. AMOXICILLIN/CLAVULANIC ACID [Concomitant]
     Active Substance: AMOXICILLIN\CLAVULANIC ACID
     Indication: WOUND INFECTION
     Dosage: UNK

REACTIONS (1)
  - Drug reaction with eosinophilia and systemic symptoms [Unknown]
